FAERS Safety Report 6274024-6 (Version None)
Quarter: 2009Q3

REPORT INFORMATION
  Report Type: 
  Country: None (occurrence: None)
  Receive Date: 20090720
  Receipt Date: 20090709
  Transmission Date: 20100115
  Serious: Yes (Other)
  Sender: FDA-Public Use
  Company Number: DE-GENENTECH-286950

PATIENT
  Sex: Female

DRUGS (4)
  1. RANIBIZUMAB [Suspect]
     Indication: MACULAR DEGENERATION
     Dosage: UNK MG, UNK
     Route: 031
     Dates: start: 20081215
  2. RANIBIZUMAB [Suspect]
     Dosage: UNK
     Dates: start: 20090112
  3. RANIBIZUMAB [Suspect]
     Dosage: UNK
     Dates: start: 20090209
  4. RANIBIZUMAB [Suspect]
     Dosage: UNK

REACTIONS (2)
  - RETINAL HAEMORRHAGE [None]
  - VISUAL ACUITY REDUCED [None]
